FAERS Safety Report 7816479-9 (Version None)
Quarter: 2011Q4

REPORT INFORMATION
  Report Type: 
  Country: None (occurrence: None)
  Receive Date: 20111017
  Receipt Date: 20111005
  Transmission Date: 20120403
  Serious: Yes (Other)
  Sender: FDA-Public Use
  Company Number: US-JNJFOC-20111003381

PATIENT
  Sex: Male
  Weight: 74.84 kg

DRUGS (11)
  1. DURAGESIC-100 [Suspect]
     Route: 062
  2. DURAGESIC-100 [Suspect]
     Route: 062
     Dates: start: 20090901, end: 20100901
  3. DURAGESIC-100 [Suspect]
     Route: 062
     Dates: start: 20100901, end: 20101101
  4. DURAGESIC-100 [Suspect]
     Route: 062
     Dates: start: 20080101, end: 20090901
  5. NEXIUM [Concomitant]
     Indication: GASTROOESOPHAGEAL REFLUX DISEASE
     Route: 048
     Dates: start: 20010101
  6. DURAGESIC-100 [Suspect]
     Route: 062
     Dates: start: 20110901
  7. DURAGESIC-100 [Suspect]
     Indication: BACK PAIN
     Route: 062
  8. DURAGESIC-100 [Suspect]
     Route: 062
  9. DURAGESIC-100 [Suspect]
     Route: 062
     Dates: start: 20110401, end: 20110901
  10. DURAGESIC-100 [Suspect]
     Route: 062
     Dates: end: 20080101
  11. FLONASE [Concomitant]
     Indication: SEASONAL ALLERGY
     Route: 055
     Dates: start: 19960101

REACTIONS (8)
  - PRODUCT QUALITY ISSUE [None]
  - NERVE COMPRESSION [None]
  - WRONG TECHNIQUE IN DRUG USAGE PROCESS [None]
  - ACCIDENT [None]
  - BACK PAIN [None]
  - INTERVERTEBRAL DISC DISPLACEMENT [None]
  - INTERVERTEBRAL DISC PROTRUSION [None]
  - BONE DISORDER [None]
